FAERS Safety Report 5966096-0 (Version None)
Quarter: 2008Q4

REPORT INFORMATION
  Report Type: 
  Country: None (occurrence: None)
  Receive Date: 20081125
  Receipt Date: 20081113
  Transmission Date: 20090506
  Serious: Yes (Hospitalization, Other)
  Sender: FDA-Public Use
  Company Number: US-ELI_LILLY_AND_COMPANY-US200810004436

PATIENT
  Sex: Female
  Weight: 67.574 kg

DRUGS (10)
  1. GEMZAR [Suspect]
     Indication: NON-SMALL CELL LUNG CANCER STAGE II
     Dosage: UNK, UNK
     Dates: start: 20051228, end: 20060503
  2. CARBOPLATIN [Concomitant]
     Indication: NON-SMALL CELL LUNG CANCER STAGE II
     Dosage: UNK, UNK
     Dates: end: 20060503
  3. ADALAT CC [Concomitant]
     Dosage: 60 MG, DAILY (1/D)
     Route: 048
  4. AVAPRO [Concomitant]
     Dosage: 150 MG, DAILY (1/D)
     Route: 048
  5. VITAMIN B COMPLEX /01753401/ [Concomitant]
     Dosage: 1 D/F, DAILY (1/D)
     Route: 048
  6. FISH OIL [Concomitant]
     Dosage: 2 D/F, DAILY (1/D)
     Route: 048
  7. GLUCOPHAGE [Concomitant]
     Dosage: 500 MG, DAILY (1/D)
     Route: 048
  8. K-DUR [Concomitant]
     Dosage: 20 MEQ, 2/D
     Route: 048
  9. YEAST [Concomitant]
     Dosage: 1200 MG, DAILY (1/D)
     Route: 048
  10. TOPROL-XL [Concomitant]
     Dosage: 100 MG, DAILY (1/D)
     Route: 048

REACTIONS (9)
  - DIABETIC NEUROPATHY [None]
  - GLOMERULOSCLEROSIS [None]
  - HAEMOLYTIC URAEMIC SYNDROME [None]
  - NEPHROSCLEROSIS [None]
  - PLATELET COUNT DECREASED [None]
  - RENAL FAILURE ACUTE [None]
  - RENAL FAILURE CHRONIC [None]
  - THROMBOTIC MICROANGIOPATHY [None]
  - TUBULOINTERSTITIAL NEPHRITIS [None]
